FAERS Safety Report 8531135-X (Version None)
Quarter: 2012Q3

REPORT INFORMATION
  Report Type: 
  Country: None (occurrence: None)
  Receive Date: 20120710
  Receipt Date: 20120627
  Transmission Date: 20120928
  Serious: Yes (Other)
  Sender: FDA-Public Use
  Company Number: 2011MA003482

PATIENT
  Age: 42 Year
  Sex: Male
  Weight: 68.9467 kg

DRUGS (41)
  1. METOCLOPRAMIDE [Suspect]
     Indication: NAUSEA
     Dosage: 10 MG;AC + HS:PO
     Route: 048
     Dates: start: 20080922, end: 20090301
  2. METOCLOPRAMIDE [Suspect]
     Indication: IMPAIRED GASTRIC EMPTYING
     Dosage: 10 MG;AC + HS:PO
     Route: 048
     Dates: start: 20080922, end: 20090301
  3. METOCLOPRAMIDE [Suspect]
     Indication: VOMITING
     Dosage: 10 MG;AC + HS:PO
     Route: 048
     Dates: start: 20080922, end: 20090301
  4. ASTELIN [Concomitant]
  5. HYDROMORPHONE HCL [Concomitant]
  6. KENALOG [Concomitant]
  7. METOPROLOL SUCCINATE [Concomitant]
  8. ACETAINOPHEN/CODEINE [Concomitant]
  9. AMBIEN [Concomitant]
  10. ELDERBERRY [Concomitant]
  11. FEXOFENADINE [Concomitant]
  12. LUNESTA [Concomitant]
  13. HYDROCODONE [Concomitant]
  14. MEDROL [Concomitant]
  15. BACLOFEN [Concomitant]
  16. CYCLOBENAZPRINE [Concomitant]
  17. WELCHOL [Concomitant]
  18. ZITHROMAX [Concomitant]
  19. ALBUTEROL [Concomitant]
  20. CHOLESTYRAMINE [Concomitant]
  21. OCMBIVENT [Concomitant]
  22. DICLOFENAC POTASSIUM [Concomitant]
  23. ETODOLAC [Concomitant]
  24. MAXALT [Concomitant]
  25. TRAMADOL HYDROCHLORIDE [Concomitant]
  26. VERAMYST [Concomitant]
  27. COLLOIDAL SILVER [Concomitant]
  28. DICYCLOMINE [Concomitant]
  29. ECHINACEA [Concomitant]
  30. PROMETHAZINE [Concomitant]
  31. ADVAIR DISKUS 100/50 [Concomitant]
  32. GABAPENTIN [Concomitant]
  33. NORCO [Concomitant]
  34. PROCHLORPERAZINE [Concomitant]
  35. AMRIX [Concomitant]
  36. HYDROCODONE BITARTRATE AND ACETAMINOPHEN [Concomitant]
  37. ONDANSETRON [Concomitant]
  38. RESTORIL [Concomitant]
  39. SINGULAIR [Concomitant]
  40. ULTRAM [Concomitant]
  41. ASCORBIC ACID [Concomitant]

REACTIONS (20)
  - FIBROMYALGIA [None]
  - AKATHISIA [None]
  - LIGAMENT SPRAIN [None]
  - PRODUCTIVE COUGH [None]
  - ECONOMIC PROBLEM [None]
  - UPPER RESPIRATORY TRACT INFECTION [None]
  - RHINITIS ALLERGIC [None]
  - MIGRAINE [None]
  - MUSCLE SPASMS [None]
  - FAMILY STRESS [None]
  - MYALGIA [None]
  - EMOTIONAL DISORDER [None]
  - ASTHMA [None]
  - ABDOMINAL RIGIDITY [None]
  - BACK PAIN [None]
  - INSOMNIA [None]
  - DYSPNOEA EXERTIONAL [None]
  - HEADACHE [None]
  - DYSKINESIA [None]
  - IMPAIRED GASTRIC EMPTYING [None]
